FAERS Safety Report 21123746 (Version 1)
Quarter: 2022Q3

REPORT INFORMATION
  Report Type: Spontaneous
  Country: CN (occurrence: None)
  Receive Date: 20220725
  Receipt Date: 20220725
  Transmission Date: 20221027
  Serious: Yes (Other)
  Sender: FDA-Public Use
  Company Number: CN-Sloan Pharma SARL-MDD202207-002052

PATIENT
  Age: 53 Year
  Sex: Female

DRUGS (1)
  1. RIMABOTULINUMTOXINB [Suspect]
     Active Substance: RIMABOTULINUMTOXINB
     Indication: Product used for unknown indication
     Dosage: NOT PROVIDED

REACTIONS (1)
  - Mycobacterium abscessus infection [Recovered/Resolved]
